FAERS Safety Report 11190417 (Version 4)
Quarter: 2015Q4

REPORT INFORMATION
  Report Type: Report from Study
  Country: JP (occurrence: JP)
  Receive Date: 20150615
  Receipt Date: 20151120
  Transmission Date: 20160304
  Serious: Yes (Hospitalization, Other)
  Sender: FDA-Public Use
  Company Number: JP-009507513-1506JPN007004

PATIENT
  Age: 57 Year
  Sex: Male
  Weight: 89 kg

DRUGS (13)
  1. REBETOL [Suspect]
     Active Substance: RIBAVIRIN
     Indication: HEPATIC CIRRHOSIS
     Dosage: 1000 MG, QD
     Route: 048
     Dates: start: 20130904, end: 20131229
  2. REBETOL [Suspect]
     Active Substance: RIBAVIRIN
     Dosage: 600 MG, QD
     Route: 048
     Dates: start: 20140319, end: 20140702
  3. LOXONIN [Concomitant]
     Active Substance: LOXOPROFEN SODIUM
     Indication: PAIN
     Dosage: 60 MG, QD
     Route: 048
     Dates: start: 20130802, end: 20140713
  4. PEGINTRON [Suspect]
     Active Substance: PEGINTERFERON ALFA-2B
     Indication: HEPATIC CIRRHOSIS
     Dosage: 120 MICROGRAM, QW
     Route: 058
     Dates: start: 20130904, end: 20131225
  5. REBETOL [Suspect]
     Active Substance: RIBAVIRIN
     Dosage: 1000 MG, QD
     Route: 048
     Dates: start: 20140115, end: 20140304
  6. REBETOL [Suspect]
     Active Substance: RIBAVIRIN
     Dosage: 600 MG, QD
     Route: 048
     Dates: start: 20140305, end: 20140311
  7. OMEPRAZOLE. [Concomitant]
     Active Substance: OMEPRAZOLE
     Indication: GASTROOESOPHAGEAL REFLUX DISEASE
     Dosage: 20 MG, QD
     Route: 048
     Dates: start: 20130731
  8. PEGINTRON [Suspect]
     Active Substance: PEGINTERFERON ALFA-2B
     Dosage: 120 MICROGRAM, QW
     Route: 058
     Dates: start: 20140319, end: 20140702
  9. HALCION [Concomitant]
     Active Substance: TRIAZOLAM
     Indication: INSOMNIA
     Dosage: 0.25 MG, QD (FORMULATION: POR)
     Route: 048
     Dates: start: 20130727, end: 20140702
  10. LOXONIN [Concomitant]
     Active Substance: LOXOPROFEN SODIUM
     Indication: PYREXIA
  11. PEGINTRON [Suspect]
     Active Substance: PEGINTERFERON ALFA-2B
     Dosage: 120 MICROGRAM, QW
     Route: 058
     Dates: start: 20140115, end: 20140305
  12. LIVACT [Concomitant]
     Active Substance: AMINO ACIDS
     Indication: HYPOALBUMINAEMIA
     Dosage: 4.15 G, TID
     Route: 048
     Dates: start: 20130826, end: 20130904
  13. INDERAL [Concomitant]
     Active Substance: PROPRANOLOL HYDROCHLORIDE
     Indication: HYPERTENSION
     Dosage: 10 MG, TID
     Route: 048
     Dates: start: 20130624, end: 20140305

REACTIONS (20)
  - Hepatic encephalopathy [Recovering/Resolving]
  - Hypokalaemia [Recovering/Resolving]
  - Pruritus [Recovering/Resolving]
  - Anaemia [Recovering/Resolving]
  - Sinusitis [Not Recovered/Not Resolved]
  - Enterocolitis [Recovering/Resolving]
  - Arthralgia [Recovering/Resolving]
  - Disseminated intravascular coagulation [Not Recovered/Not Resolved]
  - Tonsillitis [Recovering/Resolving]
  - Hypophagia [Recovering/Resolving]
  - Abdominal pain [Recovering/Resolving]
  - Ascites [Recovering/Resolving]
  - Epistaxis [Recovering/Resolving]
  - Hyperbilirubinaemia [Not Recovered/Not Resolved]
  - Gastric ulcer [Recovering/Resolving]
  - Hyperammonaemia [Not Recovered/Not Resolved]
  - Chronic gastritis [Recovering/Resolving]
  - Asteatosis [Recovering/Resolving]
  - Muscle spasms [Recovering/Resolving]
  - Gastric ulcer haemorrhage [Recovering/Resolving]

NARRATIVE: CASE EVENT DATE: 20130918
